FAERS Safety Report 9812934 (Version 2)
Quarter: 2014Q4

REPORT INFORMATION
  Report Type: Spontaneous
  Country: US (occurrence: None)
  Receive Date: 20140108
  Receipt Date: 20141121
  Transmission Date: 20150529
  Serious: Yes (Other)
  Sender: FDA-Public Use
  Company Number: JPI-P-021204

PATIENT
  Age: 48 Year
  Sex: Female

DRUGS (2)
  1. XYREM [Suspect]
     Active Substance: SODIUM OXYBATE
     Indication: NARCOLEPSY
     Dosage: 2.25 TO 4.5GM TWICE NIGHTLY, ORAL
     Route: 048
     Dates: start: 20120123
  2. XYREM [Suspect]
     Active Substance: SODIUM OXYBATE
     Indication: CATAPLEXY
     Dosage: 2.25 TO 4.5GM TWICE NIGHTLY, ORAL
     Route: 048
     Dates: start: 20120123

REACTIONS (2)
  - Condition aggravated [None]
  - Rectocele [None]

NARRATIVE: CASE EVENT DATE: 201204
